FAERS Safety Report 11003936 (Version 1)
Quarter: 2015Q2

REPORT INFORMATION
  Report Type: Spontaneous
  Country: None (occurrence: None)
  Receive Date: 20150408
  Receipt Date: 20150408
  Transmission Date: 20150821
  Serious: No
  Sender: FDA-Public Use
  Company Number: None

PATIENT
  Age: 45 Year
  Sex: Female
  Weight: 58.97 kg

DRUGS (1)
  1. HARVONI [Suspect]
     Active Substance: LEDIPASVIR\SOFOSBUVIR
     Indication: HEPATITIS C

REACTIONS (9)
  - Lymphadenopathy [None]
  - Feeling cold [None]
  - Swelling face [None]
  - Oral mucosal exfoliation [None]
  - Diarrhoea [None]
  - Neck pain [None]
  - Sensitivity of teeth [None]
  - Fatigue [None]
  - Peripheral swelling [None]
